FAERS Safety Report 4445943-8 (Version None)
Quarter: 2004Q3

REPORT INFORMATION
  Report Type: 
  Country: None (occurrence: None)
  Receive Date: 20040903
  Receipt Date: 20040824
  Transmission Date: 20050211
  Serious: No
  Sender: FDA-Public Use
  Company Number: 04H-163-0271604-00

PATIENT
  Age: 50 Year
  Sex: Female

DRUGS (2)
  1. DOBUTAMINE HCL [Suspect]
     Indication: STRESS ECHOCARDIOGRAM
     Dosage: 30 MCG/KG/MIN, CONTINUOUS, INTRAVENOUS
     Route: 042
  2. CALCIUM CHANNEL BLOCKERS [Concomitant]

REACTIONS (2)
  - CARDIAC ANEURYSM [None]
  - MYOCARDIAL INFARCTION [None]
